FAERS Safety Report 9535598 (Version 1)
Quarter: 2013Q3

REPORT INFORMATION
  Report Type: Report from Study
  Country: CL (occurrence: CL)
  Receive Date: 20130919
  Receipt Date: 20130919
  Transmission Date: 20140515
  Serious: Yes (Hospitalization, Other)
  Sender: FDA-Public Use
  Company Number: CL-ROCHE-1276825

PATIENT
  Sex: Female
  Weight: 61 kg

DRUGS (5)
  1. XELODA [Suspect]
     Indication: COLON CANCER
     Dosage: 14 DAYS CYCLE
     Route: 048
     Dates: start: 20130816, end: 20130826
  2. OXALIPLATIN [Suspect]
     Indication: COLON CANCER
     Dosage: EVERY 21 DAYS
     Route: 042
     Dates: start: 20130816, end: 20130826
  3. LOSARTAN [Concomitant]
     Indication: HYPERTENSION
     Route: 048
     Dates: start: 2006
  4. METFORMIN [Concomitant]
     Indication: DIABETES MELLITUS
     Route: 048
     Dates: start: 2006
  5. ATORVASTATIN [Concomitant]
     Indication: DYSLIPIDAEMIA
     Route: 048
     Dates: start: 2006

REACTIONS (2)
  - Intestinal obstruction [Recovered/Resolved]
  - Metastases to liver [Not Recovered/Not Resolved]
